FAERS Safety Report 6770393-9 (Version None)
Quarter: 2010Q2

REPORT INFORMATION
  Report Type: 
  Country: None (occurrence: None)
  Receive Date: 20100615
  Receipt Date: 20100506
  Transmission Date: 20101027
  Serious: Yes (Hospitalization, Other)
  Sender: FDA-Public Use
  Company Number: US-BAXTER-2009BH001615

PATIENT
  Age: 52 Year
  Sex: Male
  Weight: 79 kg

DRUGS (11)
  1. HEPARIN SODIUM [Suspect]
     Indication: PREOPERATIVE CARE
     Route: 058
     Dates: start: 20071117, end: 20071118
  2. HEPARIN SODIUM [Suspect]
     Indication: PULMONARY EMBOLISM
     Route: 058
     Dates: start: 20071117, end: 20071118
  3. HEPARIN SODIUM 5,000 UNITS IN DEXTROSE 5% [Suspect]
     Indication: PULMONARY EMBOLISM
     Route: 041
     Dates: start: 20071127, end: 20071127
  4. DALTEPARIN SODIUM [Suspect]
     Indication: PULMONARY EMBOLISM
     Route: 058
     Dates: start: 20071127, end: 20071129
  5. LOVENOX [Suspect]
     Indication: PULMONARY EMBOLISM
     Route: 058
     Dates: start: 20071129, end: 20071202
  6. LOVENOX [Suspect]
     Route: 058
     Dates: start: 20071204, end: 20071206
  7. LISINOPRIL [Concomitant]
     Indication: DRUG USE FOR UNKNOWN INDICATION
     Route: 065
  8. KLOR-CON [Concomitant]
     Indication: DRUG USE FOR UNKNOWN INDICATION
     Route: 048
  9. FISH OIL [Concomitant]
     Indication: DRUG USE FOR UNKNOWN INDICATION
     Route: 065
  10. WARFARIN [Concomitant]
     Indication: DRUG USE FOR UNKNOWN INDICATION
     Route: 048
  11. HYDROCHLOROTHIAZIDE [Concomitant]
     Indication: DRUG USE FOR UNKNOWN INDICATION
     Route: 048

REACTIONS (16)
  - CAROTID ARTERY STENOSIS [None]
  - DEEP VEIN THROMBOSIS [None]
  - DRUG HYPERSENSITIVITY [None]
  - DYSPHAGIA [None]
  - DYSPNOEA [None]
  - EMBOLIC STROKE [None]
  - HYPOAESTHESIA [None]
  - METASTASIS [None]
  - MUSCLE SPASMS [None]
  - MUSCULAR WEAKNESS [None]
  - NEUROPATHY PERIPHERAL [None]
  - PAIN [None]
  - PARAESTHESIA [None]
  - PERIPHERAL COLDNESS [None]
  - POST PROCEDURAL PULMONARY EMBOLISM [None]
  - PULMONARY EMBOLISM [None]
